FAERS Safety Report 5154732-0 (Version None)
Quarter: 2006Q4

REPORT INFORMATION
  Report Type: 
  Country: None (occurrence: None)
  Receive Date: 20061115
  Receipt Date: 20061115
  Transmission Date: 20070319
  Serious: Yes (Hospitalization)
  Sender: FDA-Public Use
  Company Number: None

PATIENT
  Sex: Male
  Weight: 80.2867 kg

DRUGS (3)
  1. GEMCITABINE LILLY [Suspect]
     Indication: PANCREATIC CARCINOMA
     Dosage: 1000MG/M2 EVERY OTHER WEEK
     Route: 042
     Dates: start: 20060420, end: 20061003
  2. CISPLATIN BM [Suspect]
     Indication: PANCREATIC CARCINOMA
     Dosage: 20MG/M2 EVERY OTHER WEEK IV
     Route: 042
     Dates: start: 20060420, end: 20061003
  3. BEVACIZUMAB 25MG/ML GENENTECH [Suspect]
     Indication: PANCREATIC CARCINOMA
     Dosage: 10MG/KG EVERY OTHER WEEK IV
     Route: 042
     Dates: start: 20060420, end: 20061003

REACTIONS (7)
  - DISEASE PROGRESSION [None]
  - GASTRIC VARICES HAEMORRHAGE [None]
  - GASTRITIS EROSIVE [None]
  - HAEMATEMESIS [None]
  - HAEMATOCRIT DECREASED [None]
  - HAEMOGLOBIN DECREASED [None]
  - VARICES OESOPHAGEAL [None]
